FAERS Safety Report 24133204 (Version 1)
Quarter: 2024Q3

REPORT INFORMATION
  Report Type: Spontaneous
  Country: PT (occurrence: PT)
  Receive Date: 20240724
  Receipt Date: 20240724
  Transmission Date: 20241016
  Serious: Yes (Death, Other)
  Sender: BAXTER
  Company Number: None

PATIENT
  Age: 45 Year
  Sex: Female
  Weight: 100 kg

DRUGS (4)
  1. CYCLOPHOSPHAMIDE [Suspect]
     Active Substance: CYCLOPHOSPHAMIDE
     Indication: Prophylaxis against graft versus host disease
     Dosage: 1 TOTAL (50 MG/KG/DAY - 2 DAYS (D+3 AND D+4 POST-AHPCT))
     Route: 042
     Dates: start: 20240630, end: 20240701
  2. FLUDARABINE PHOSPHATE [Concomitant]
     Active Substance: FLUDARABINE PHOSPHATE
     Indication: Prophylaxis against graft versus host disease
     Dosage: 103.5 MG, ONE TIME IN 3 DAYS
     Route: 065
  3. BUSULFAN [Concomitant]
     Active Substance: BUSULFAN
     Indication: Prophylaxis against graft versus host disease
     Dosage: 217.66 MG, QD
     Route: 042
  4. TEPADINA [Concomitant]
     Active Substance: THIOTEPA
     Indication: Prophylaxis against graft versus host disease
     Dosage: 375 MG, QD, DOSAGE FORM: POWDER FOR CONCENTRATE FOR SOLUTION FOR INFUSION
     Route: 042

REACTIONS (4)
  - Cardiogenic shock [Fatal]
  - Hypotension [Fatal]
  - Sinus tachycardia [Fatal]
  - Acute respiratory failure [Fatal]

NARRATIVE: CASE EVENT DATE: 20240703
